FAERS Safety Report 9609398 (Version 1)
Quarter: 2013Q4

REPORT INFORMATION
  Report Type: Spontaneous
  Country: US (occurrence: None)
  Receive Date: 20131007
  Receipt Date: 20131007
  Transmission Date: 20140711
  Serious: Yes (Disabling)
  Sender: FDA-Public Use
  Company Number: None

PATIENT
  Age: 43 Year
  Sex: Male
  Weight: 78 kg

DRUGS (1)
  1. NICARDIS [Suspect]
     Indication: HYPERTENSION
     Dates: start: 20131002

REACTIONS (4)
  - Paraesthesia [None]
  - Somnolence [None]
  - Amnesia [None]
  - Hypoaesthesia [None]
